FAERS Safety Report 6381887-2 (Version None)
Quarter: 2009Q3

REPORT INFORMATION
  Report Type: 
  Country: None (occurrence: None)
  Receive Date: 20090930
  Receipt Date: 20090922
  Transmission Date: 20100115
  Serious: Yes (Other)
  Sender: FDA-Public Use
  Company Number: US-JNJFOC-20090905951

PATIENT
  Sex: Male
  Weight: 117.03 kg

DRUGS (14)
  1. REMICADE [Suspect]
     Indication: RHEUMATOID ARTHRITIS
     Dosage: DOSE 15TH WAS IN JAN-2006; TOTAL NUMBER OF INFUSIONS: 38
     Route: 042
     Dates: start: 20031229, end: 20090812
  2. LIPITOR [Concomitant]
  3. PREDNISONE TAB [Concomitant]
  4. ZYRTEC [Concomitant]
  5. MOBIC [Concomitant]
  6. MULTI-VITAMINS [Concomitant]
  7. LORTAB [Concomitant]
  8. ASPIRIN [Concomitant]
  9. ARAVA [Concomitant]
     Indication: RHEUMATOID ARTHRITIS
  10. METFORMIN HCL [Concomitant]
  11. FLEXERIL [Concomitant]
  12. ASCORBIC ACID [Concomitant]
  13. OSTEO BI-FLEX [Concomitant]
  14. METHOTREXATE [Concomitant]
     Indication: RHEUMATOID ARTHRITIS

REACTIONS (2)
  - B-CELL LYMPHOMA [None]
  - BONE LESION [None]
